FAERS Safety Report 4454824-5 (Version None)
Quarter: 2004Q3

REPORT INFORMATION
  Report Type: 
  Country: None (occurrence: None)
  Receive Date: 20040826
  Receipt Date: 20040715
  Transmission Date: 20050211
  Serious: Yes (Life-Threatening)
  Sender: FDA-Public Use
  Company Number: WAES 0407USA01322

PATIENT
  Age: 67 Year
  Sex: Female

DRUGS (7)
  1. ZETIA [Suspect]
     Indication: HYPERLIPIDAEMIA
     Dosage: 10 MG/DAILY/PO
     Route: 048
     Dates: start: 20040608, end: 20040610
  2. DARVOCET-N 100 [Concomitant]
  3. HYDRODIURIL [Concomitant]
  4. LOTREL [Concomitant]
  5. TRICOR [Concomitant]
  6. ZYRTEC [Concomitant]
  7. CALCIUM FERROUS CITRATE [Concomitant]

REACTIONS (1)
  - ANGIONEUROTIC OEDEMA [None]
